FAERS Safety Report 16862564 (Version 5)
Quarter: 2020Q3

REPORT INFORMATION
  Report Type: Spontaneous
  Country: US (occurrence: US)
  Receive Date: 20190927
  Receipt Date: 20200720
  Transmission Date: 20201102
  Serious: Yes (Other)
  Sender: FDA-Public Use
  Company Number: US-PFIZER INC-2017364907

PATIENT
  Age: 65 Year
  Sex: Male
  Weight: 74.83 kg

DRUGS (11)
  1. OMEPRAZOLE. [Concomitant]
     Active Substance: OMEPRAZOLE
     Dosage: 20 MG, DAILY (1 CAP DAILY)
  2. FERROUS SULFATE. [Concomitant]
     Active Substance: FERROUS SULFATE
     Dosage: 325 MG, UNK
  3. FLUCONAZOL [Concomitant]
     Active Substance: FLUCONAZOLE
     Indication: DISCOMFORT
  4. TRIAMCINOLONE [Concomitant]
     Active Substance: TRIAMCINOLONE
     Dosage: UNK, AS NEEDED (0.5% APPLY WHERE IS NEED 2 TIMES A DAY)
  5. FLUCONAZOL [Concomitant]
     Active Substance: FLUCONAZOLE
     Indication: URTICARIA
     Dosage: UNK
  6. METOPROLOL SUCCINATE. [Concomitant]
     Active Substance: METOPROLOL SUCCINATE
     Dosage: 25 MG, DAILY
  7. IRON [Concomitant]
     Active Substance: IRON
     Dosage: 65 MG, UNK
  8. LYRICA [Suspect]
     Active Substance: PREGABALIN
     Indication: COMPLEX REGIONAL PAIN SYNDROME
     Dosage: 100 MG, 3X/DAY (1 CAPSULE THREE TIMES A DAY 90 DAYS)
     Dates: start: 2007
  9. SPIRONOLACTONE. [Concomitant]
     Active Substance: SPIRONOLACTONE
     Dosage: 50 MG, DAILY
  10. MORPHINE [Concomitant]
     Active Substance: MORPHINE
     Dosage: UNK (INFUSION VIA PAIN PUMP)
  11. FLUCONAZOL [Concomitant]
     Active Substance: FLUCONAZOLE
     Indication: BODY TEMPERATURE

REACTIONS (7)
  - Product use in unapproved indication [Unknown]
  - Rhinorrhoea [Not Recovered/Not Resolved]
  - Neuropathy peripheral [Recovered/Resolved]
  - Off label use [Unknown]
  - Oropharyngeal pain [Recovered/Resolved]
  - Mood altered [Recovered/Resolved]
  - Deafness [Unknown]

NARRATIVE: CASE EVENT DATE: 2007
